FAERS Safety Report 8358376-9 (Version None)
Quarter: 2012Q2

REPORT INFORMATION
  Report Type: 
  Country: None (occurrence: None)
  Receive Date: 20120514
  Receipt Date: 20110505
  Transmission Date: 20120825
  Serious: No
  Sender: FDA-Public Use
  Company Number: US-ALEXION-A201100660

PATIENT
  Sex: Female

DRUGS (6)
  1. PREDNISONE [Concomitant]
     Dosage: 15 MG
     Dates: end: 20110411
  2. PREDNISONE [Concomitant]
     Dosage: 05 MG QOD
     Dates: start: 20110504
  3. SOLIRIS [Suspect]
     Dosage: 900 MG, Q2W
     Route: 042
     Dates: start: 20111005
  4. SOLIRIS [Suspect]
     Indication: PAROXYSMAL NOCTURNAL HAEMOGLOBINURIA
     Dosage: UNK
     Route: 042
     Dates: start: 20110103
  5. PREDNISONE [Concomitant]
     Dosage: 10 MG UNK
     Dates: start: 20110411, end: 20110504
  6. PREDNISONE [Concomitant]
     Dosage: 10 MG, QOD
     Dates: start: 20110504

REACTIONS (7)
  - BRONCHITIS [None]
  - CHROMATURIA [None]
  - PRODUCTIVE COUGH [None]
  - OROPHARYNGEAL PAIN [None]
  - HAEMOGLOBIN DECREASED [None]
  - BLOOD LACTATE DEHYDROGENASE INCREASED [None]
  - PLATELET COUNT DECREASED [None]
